FAERS Safety Report 15900658 (Version 1)
Quarter: 2019Q1

REPORT INFORMATION
  Report Type: Spontaneous
  Country: CA (occurrence: CA)
  Receive Date: 20190201
  Receipt Date: 20190201
  Transmission Date: 20190417
  Serious: Yes (Other)
  Sender: FDA-Public Use
  Company Number: CA-PFIZER INC-2019041541

PATIENT
  Age: 66 Year
  Sex: Male

DRUGS (5)
  1. ASAPHEN [Concomitant]
     Active Substance: ASPIRIN
     Dosage: UNK
     Route: 065
  2. PREDNISONE [PREDNISONE ACETATE] [Concomitant]
     Active Substance: PREDNISONE ACETATE
     Dosage: UNK
     Route: 065
  3. PREGABALIN. [Suspect]
     Active Substance: PREGABALIN
     Dosage: UNK
     Route: 065
  4. CELECOXIB. [Suspect]
     Active Substance: CELECOXIB
     Dosage: UNK
     Route: 065
  5. AMLODIPINE BESILATE [Suspect]
     Active Substance: AMLODIPINE BESYLATE
     Dosage: UNK
     Route: 065

REACTIONS (4)
  - Pain in extremity [Unknown]
  - Hypoacusis [Unknown]
  - Arthralgia [Unknown]
  - Cataract [Unknown]
